FAERS Safety Report 6078187-7 (Version None)
Quarter: 2009Q1

REPORT INFORMATION
  Report Type: 
  Country: None (occurrence: None)
  Receive Date: 20090213
  Receipt Date: 20090209
  Transmission Date: 20090719
  Serious: Yes (Death, Other)
  Sender: FDA-Public Use
  Company Number: PHHY2009BR04660

PATIENT
  Age: 86 Year
  Sex: Male

DRUGS (7)
  1. GALVUS MET COMBIPACK [Suspect]
     Dosage: A HALF TABLET OF BOTH
     Dates: start: 20070801
  2. PROLOPA [Concomitant]
     Indication: PARKINSON'S DISEASE
     Dosage: HALF A TABLET IN THE MORNING AND HALF TABLET AT NIGHT
     Route: 048
  3. AKINETON [Concomitant]
     Indication: PARKINSON'S DISEASE
     Dosage: 1 TABLET AT NIGHT
     Route: 048
  4. MODURETIC 5-50 [Concomitant]
     Dosage: 1 TABLET DAILY
  5. HYDERGINE [Concomitant]
     Dosage: 1 TABLET IN THE MORNING
     Route: 048
  6. AAS [Concomitant]
     Dosage: 1 TABLET DAILY
     Route: 048
  7. HALDOL [Concomitant]
     Dosage: 1 TABLET AT NIGHT
     Route: 048

REACTIONS (3)
  - ASTHENIA [None]
  - INFARCTION [None]
  - RESPIRATORY FAILURE [None]
